FAERS Safety Report 5808670-8 (Version None)
Quarter: 2008Q3

REPORT INFORMATION
  Report Type: 
  Country: None (occurrence: None)
  Receive Date: 20080714
  Receipt Date: 20080325
  Transmission Date: 20090109
  Serious: No
  Sender: FDA-Public Use
  Company Number: US-BAYER-200818003NA

PATIENT
  Age: 30 Year
  Sex: Female
  Weight: 59 kg

DRUGS (1)
  1. MIRENA [Suspect]
     Indication: DRUG USE FOR UNKNOWN INDICATION
     Route: 015
     Dates: start: 20080224

REACTIONS (7)
  - ABDOMINAL PAIN LOWER [None]
  - ANGER [None]
  - FRUSTRATION [None]
  - IMPATIENCE [None]
  - MOOD SWINGS [None]
  - NO ADVERSE EVENT [None]
  - VAGINAL HAEMORRHAGE [None]
